FAERS Safety Report 8948350 (Version 4)
Quarter: 2013Q4

REPORT INFORMATION
  Report Type: Spontaneous
  Country: JP (occurrence: JP)
  Receive Date: 20121206
  Receipt Date: 20131218
  Transmission Date: 20140711
  Serious: Yes (Death, Hospitalization, Other)
  Sender: FDA-Public Use
  Company Number: PHHY2012JP112013

PATIENT
  Age: 52 Year
  Sex: Male
  Weight: 73 kg

DRUGS (3)
  1. NEORAL [Suspect]
     Indication: PSORIASIS
     Dosage: 200 MG, DAILY
     Route: 048
     Dates: start: 20100713
  2. AMADRA [Suspect]
     Indication: PSORIASIS
     Dosage: 200 MG, UNK
     Dates: start: 2003, end: 20100421
  3. NEO-MINOPHAGEN C [Concomitant]
     Indication: CHRONIC HEPATITIS C
     Route: 042

REACTIONS (2)
  - Hepatocellular carcinoma [Fatal]
  - Malignant neoplasm progression [Fatal]
